FAERS Safety Report 9678301 (Version 2)
Quarter: 2014Q1

REPORT INFORMATION
  Report Type: Spontaneous
  Country: US (occurrence: US)
  Receive Date: 20131108
  Receipt Date: 20140220
  Transmission Date: 20141002
  Serious: Yes (Death, Hospitalization, Other)
  Sender: FDA-Public Use
  Company Number: US-PFIZER INC-2013316023

PATIENT
  Age: 56 Year
  Sex: Female

DRUGS (9)
  1. INLYTA [Suspect]
     Indication: METASTATIC RENAL CELL CARCINOMA
     Dosage: 5 MG, 2X/DAY
     Route: 048
     Dates: start: 20120710
  2. AMLODIPINE [Concomitant]
     Dosage: 10 MG, 1X/DAY (IN AM)
     Route: 048
  3. LABETALOL [Concomitant]
     Dosage: UNK
  4. LISINOPRIL [Concomitant]
     Dosage: UNK
  5. DEXAMETHASONE [Concomitant]
     Dosage: 2 MG, 2X/DAY
     Route: 048
  6. LEVOTHYROXINE SODIUM [Concomitant]
     Dosage: 150 UG, 1X/DAY
     Route: 048
  7. OXYCODONE [Concomitant]
     Indication: PAIN
     Dosage: 5 MG, 4X/DAY (PRN)
     Route: 048
  8. ZOLPIDEM TARTRATE [Concomitant]
     Dosage: 5 MG, UNK (HS)
     Route: 048
  9. DRONABINOL [Concomitant]
     Dosage: UNK
     Route: 048

REACTIONS (13)
  - Disease progression [Fatal]
  - Metastatic renal cell carcinoma [Fatal]
  - Renal failure chronic [Fatal]
  - Hyperkalaemia [Unknown]
  - Diabetes mellitus [Unknown]
  - Hyperglycaemic hyperosmolar nonketotic syndrome [Unknown]
  - Fungal oesophagitis [Unknown]
  - Diabetic ketoacidosis [Unknown]
  - Hyponatraemia [Unknown]
  - Dehydration [Unknown]
  - Urinary tract infection [Unknown]
  - Diarrhoea [Unknown]
  - Pain in extremity [Unknown]
